FAERS Safety Report 8558655-6 (Version None)
Quarter: 2012Q3

REPORT INFORMATION
  Report Type: 
  Country: None (occurrence: None)
  Receive Date: 20120801
  Receipt Date: 20120727
  Transmission Date: 20120928
  Serious: Yes (Other)
  Sender: FDA-Public Use
  Company Number: US-PFIZER INC-2012135368

PATIENT
  Sex: Male

DRUGS (10)
  1. ATENOLOL [Concomitant]
     Dosage: 50 MG, ONE EVERY MORNING
     Route: 048
  2. VICODIN [Concomitant]
     Dosage: UNK
  3. LYRICA [Suspect]
     Dosage: 100 MG, 2X/DAY
     Route: 048
     Dates: start: 20120101
  4. TRAZODONE [Concomitant]
     Dosage: 50 MG, 1 NIGHTLY
     Route: 048
  5. CYMBALTA [Concomitant]
     Indication: NEUROPATHY PERIPHERAL
     Dosage: 60 MG, 2X/DAY
     Route: 048
  6. LASIX [Concomitant]
     Dosage: 20 MG, DAILY
     Route: 048
  7. ATIVAN [Concomitant]
     Dosage: 2 MG, 2X/DAY
     Route: 048
  8. DOXEPIN [Concomitant]
     Dosage: 25 MG, (1 NIGHTLY)
     Route: 048
  9. LYRICA [Suspect]
     Indication: NEUROPATHY PERIPHERAL
     Dosage: 100 MG, 3X/DAY
     Route: 048
     Dates: start: 20060101, end: 20120101
  10. LIBRIUM [Concomitant]
     Dosage: 10 MG, 3X/DAY
     Route: 048

REACTIONS (5)
  - DRUG INEFFECTIVE [None]
  - ARTHROPATHY [None]
  - PAIN IN EXTREMITY [None]
  - LOWER LIMB FRACTURE [None]
  - PAIN [None]
